FAERS Safety Report 9051488 (Version 1)
Quarter: 2013Q1

REPORT INFORMATION
  Report Type: Spontaneous
  Country: US (occurrence: US)
  Receive Date: 20130206
  Receipt Date: 20130206
  Transmission Date: 20140127
  Serious: No
  Sender: FDA-Public Use
  Company Number: US-ALLERGAN-1215564US

PATIENT
  Age: 58 None
  Sex: Female

DRUGS (4)
  1. RESTASIS [Suspect]
     Indication: DRY EYE
     Dosage: 2 GTT, BID
     Route: 047
     Dates: start: 20121105, end: 20121106
  2. SYNTHROID [Concomitant]
     Indication: HYPOTHYROIDISM
     Dosage: 100 ?G, QAM
     Route: 048
  3. LIPITOR [Concomitant]
     Indication: BLOOD CHOLESTEROL INCREASED
     Dosage: 10 MG, QPM
     Route: 048
     Dates: start: 201210
  4. UNSPECIFIED HRT MEDICINE [Concomitant]
     Indication: HORMONE REPLACEMENT THERAPY
     Dosage: UNK, QPM
     Route: 048

REACTIONS (18)
  - Swelling face [Unknown]
  - Pain [Recovering/Resolving]
  - Rhinalgia [Recovering/Resolving]
  - Nasal discomfort [Recovering/Resolving]
  - Sinus headache [Recovering/Resolving]
  - Productive cough [Recovering/Resolving]
  - Feeling of body temperature change [Recovering/Resolving]
  - Nocturia [Recovering/Resolving]
  - Erythema [Recovering/Resolving]
  - Flushing [Recovering/Resolving]
  - Diarrhoea [Recovering/Resolving]
  - Upper-airway cough syndrome [Not Recovered/Not Resolved]
  - Insomnia [Recovering/Resolving]
  - Gingival pain [Recovering/Resolving]
  - Hyperaesthesia [Recovering/Resolving]
  - Drooling [Recovering/Resolving]
  - Fatigue [Not Recovered/Not Resolved]
  - Headache [Recovering/Resolving]
